FAERS Safety Report 8514015-5 (Version None)
Quarter: 2012Q3

REPORT INFORMATION
  Report Type: 
  Country: None (occurrence: None)
  Receive Date: 20120717
  Receipt Date: 20120709
  Transmission Date: 20120928
  Serious: No
  Sender: FDA-Public Use
  Company Number: US-009507513-1207USA002260

PATIENT

DRUGS (2)
  1. GLIMEPIRIDE [Concomitant]
  2. JANUMET [Suspect]
     Indication: TYPE 2 DIABETES MELLITUS
     Dosage: 1000/50MG, BID
     Route: 048
     Dates: start: 20120703, end: 20120703

REACTIONS (6)
  - DYSURIA [None]
  - FATIGUE [None]
  - ASTHENIA [None]
  - SLEEP DISORDER [None]
  - ABDOMINAL PAIN UPPER [None]
  - GASTROINTESTINAL MOTILITY DISORDER [None]
